FAERS Safety Report 9096125 (Version 24)
Quarter: 2015Q3

REPORT INFORMATION
  Report Type: Report from Study
  Country: CA (occurrence: CA)
  Receive Date: 20130207
  Receipt Date: 20150922
  Transmission Date: 20151125
  Serious: Yes (Other)
  Sender: FDA-Public Use
  Company Number: CA-ROCHE-1122307

PATIENT
  Age: 58 Year
  Sex: Female
  Weight: 75 kg

DRUGS (7)
  1. METHOTREXATE [Suspect]
     Active Substance: METHOTREXATE
     Indication: RHEUMATOID ARTHRITIS
     Route: 058
     Dates: start: 20120905, end: 20141028
  2. ACTEMRA [Suspect]
     Active Substance: TOCILIZUMAB
     Indication: RHEUMATOID ARTHRITIS
     Route: 042
     Dates: start: 20120904
  3. PREDNISONE. [Concomitant]
     Active Substance: PREDNISONE
  4. FOLIC ACID. [Concomitant]
     Active Substance: FOLIC ACID
  5. FLURBIPROFEN. [Concomitant]
     Active Substance: FLURBIPROFEN
  6. LEFLUNOMIDE. [Concomitant]
     Active Substance: LEFLUNOMIDE
  7. ARAVA [Concomitant]
     Active Substance: LEFLUNOMIDE

REACTIONS (25)
  - Tooth loss [Unknown]
  - Peripheral swelling [Unknown]
  - Weight decreased [Unknown]
  - Oxygen saturation decreased [Unknown]
  - Musculoskeletal stiffness [Not Recovered/Not Resolved]
  - Nasopharyngitis [Recovering/Resolving]
  - Rash [Recovered/Resolved]
  - Influenza like illness [Not Recovered/Not Resolved]
  - Oropharyngeal pain [Not Recovered/Not Resolved]
  - Poor venous access [Unknown]
  - Thyroid cyst [Not Recovered/Not Resolved]
  - Cough [Not Recovered/Not Resolved]
  - Infection [Recovered/Resolved]
  - Oxygen saturation decreased [Unknown]
  - Lymphadenopathy [Not Recovered/Not Resolved]
  - Nausea [Unknown]
  - Mass [Not Recovered/Not Resolved]
  - Sputum discoloured [Not Recovered/Not Resolved]
  - Sinus congestion [Not Recovered/Not Resolved]
  - Swelling [Not Recovered/Not Resolved]
  - Pain [Not Recovered/Not Resolved]
  - Oedema peripheral [Not Recovered/Not Resolved]
  - Lymph gland infection [Unknown]
  - Weight increased [Unknown]
  - Blood pressure increased [Unknown]

NARRATIVE: CASE EVENT DATE: 20120906
